FAERS Safety Report 20590804 (Version 1)
Quarter: 2022Q1

REPORT INFORMATION
  Report Type: Spontaneous
  Country: US (occurrence: None)
  Receive Date: 20220314
  Receipt Date: 20220314
  Transmission Date: 20220423
  Serious: Yes (Other)
  Sender: FDA-Public Use
  Company Number: None

PATIENT
  Age: 32 Year
  Sex: Female
  Weight: 51.75 kg

DRUGS (5)
  1. SUBUTEX [Suspect]
     Active Substance: BUPRENORPHINE HYDROCHLORIDE
     Indication: Drug dependence
     Dosage: OTHER QUANTITY : 90 TABLET(S);?FREQUENCY : 3 TIMES A DAY;?
     Route: 060
  2. SUBUTEX [Concomitant]
     Active Substance: BUPRENORPHINE HYDROCHLORIDE
  3. ZITHROMAX [Concomitant]
     Active Substance: AZITHROMYCIN DIHYDRATE
  4. TYLENOL [Concomitant]
     Active Substance: ACETAMINOPHEN
  5. IBU [Concomitant]
     Active Substance: IBUPROFEN

REACTIONS (3)
  - Tooth erosion [None]
  - Dental caries [None]
  - Gingival pain [None]

NARRATIVE: CASE EVENT DATE: 20210611
